FAERS Safety Report 5709621-7 (Version None)
Quarter: 2008Q2

REPORT INFORMATION
  Report Type: 
  Country: None (occurrence: None)
  Receive Date: 20080418
  Receipt Date: 20080417
  Transmission Date: 20081010
  Serious: Yes (Hospitalization)
  Sender: FDA-Public Use
  Company Number: B0513601A

PATIENT
  Age: 16 Year
  Sex: Female
  Weight: 73.1 kg

DRUGS (1)
  1. RELENZA [Suspect]
     Indication: INFLUENZA
     Dosage: 10MG TWICE PER DAY
     Route: 055
     Dates: start: 20080312, end: 20080313

REACTIONS (6)
  - ABNORMAL BEHAVIOUR [None]
  - ALTERED STATE OF CONSCIOUSNESS [None]
  - BODY TEMPERATURE INCREASED [None]
  - CRYING [None]
  - HYPERVENTILATION [None]
  - SLEEP DISORDER [None]
